FAERS Safety Report 7823650-9 (Version None)
Quarter: 2011Q4

REPORT INFORMATION
  Report Type: 
  Country: None (occurrence: None)
  Receive Date: 20111019
  Receipt Date: 20111019
  Transmission Date: 20120403
  Serious: Yes (Other)
  Sender: FDA-Public Use
  Company Number: None

PATIENT
  Age: 40 Year
  Sex: Male
  Weight: 117.93 kg

DRUGS (1)
  1. NUCYNTA [Suspect]
     Indication: PAIN
     Dosage: 50 MG
     Route: 048
     Dates: start: 20111017, end: 20111017

REACTIONS (5)
  - FEELING ABNORMAL [None]
  - TEARFULNESS [None]
  - FLAT AFFECT [None]
  - FEELING OF DESPAIR [None]
  - ABNORMAL BEHAVIOUR [None]
